FAERS Safety Report 17768117 (Version 1)
Quarter: 2020Q2

REPORT INFORMATION
  Report Type: Spontaneous
  Country: CN (occurrence: CN)
  Receive Date: 20200511
  Receipt Date: 20200511
  Transmission Date: 20200714
  Serious: Yes (Hospitalization)
  Sender: FDA-Public Use
  Company Number: CN-TOPROL ACQUISITION LLC-2020-TOP-000234

PATIENT
  Age: 68 Year
  Sex: Female

DRUGS (10)
  1. ADALAT [Concomitant]
     Active Substance: NIFEDIPINE
     Indication: HYPERTENSION
     Dosage: 1 DF, QD
     Route: 048
  2. COENZYME Q10 [Concomitant]
     Active Substance: UBIDECARENONE
     Dosage: BY HEALTH COENZYME Q10, DOSE UNKNOWN
     Route: 048
  3. CORDYCEPS CEPHALOSPORIUM [Concomitant]
     Dosage: 4 DF, BID
     Route: 048
  4. METOPROLOL SUCCINATE. [Suspect]
     Active Substance: METOPROLOL SUCCINATE
     Indication: ATRIAL FIBRILLATION
     Dosage: HALF A TABLET, DAILY
     Route: 048
  5. CALCIUM [Concomitant]
     Active Substance: CALCIUM
     Dosage: 3 BAGS A DAY
     Route: 048
  6. SALVIA MILTIORRHIZA [Concomitant]
     Active Substance: HERBALS
     Indication: CORONARY ARTERY DISEASE
     Dosage: 1 BAG, THREE TIMES A DAY, 10 PILLS IN EACH BAG
     Route: 048
  7. METOPROLOL SUCCINATE. [Suspect]
     Active Substance: METOPROLOL SUCCINATE
     Indication: ARRHYTHMIA
  8. ADALAT [Concomitant]
     Active Substance: NIFEDIPINE
     Indication: CORONARY ARTERY DISEASE
  9. NO MATCH [Concomitant]
     Active Substance: UNSPECIFIED INGREDIENT
     Dosage: 2 DF, BID
     Route: 048
  10. ASPIRIN                            /00002701/ [Concomitant]
     Active Substance: ASPIRIN
     Indication: PLATELET AGGREGATION ABNORMAL
     Dosage: 1 DF, QD
     Route: 048

REACTIONS (3)
  - Hot flush [Recovered/Resolved]
  - Skin disorder [Recovered/Resolved]
  - Asthenia [Not Recovered/Not Resolved]
